FAERS Safety Report 16962591 (Version 2)
Quarter: 2019Q4

REPORT INFORMATION
  Report Type: Spontaneous
  Country: CA (occurrence: CA)
  Receive Date: 20191025
  Receipt Date: 20191030
  Transmission Date: 20200122
  Serious: Yes (Hospitalization, Other)
  Sender: FDA-Public Use
  Company Number: CA-AMGEN-CANSP2019172939

PATIENT
  Sex: Male

DRUGS (1)
  1. PROLIA [Suspect]
     Active Substance: DENOSUMAB
     Indication: PRODUCT USED FOR UNKNOWN INDICATION
     Dosage: UNK
     Route: 065

REACTIONS (19)
  - Pain in jaw [Unknown]
  - Arthralgia [Unknown]
  - Loss of consciousness [Unknown]
  - Dizziness [Unknown]
  - Gingival pain [Unknown]
  - Spinal pain [Not Recovered/Not Resolved]
  - Gait disturbance [Unknown]
  - Myalgia [Unknown]
  - Pain in extremity [Not Recovered/Not Resolved]
  - Hypoaesthesia [Unknown]
  - Palpitations [Unknown]
  - Decreased appetite [Unknown]
  - Contusion [Unknown]
  - Crying [Unknown]
  - Alopecia [Unknown]
  - Bone pain [Unknown]
  - Weight decreased [Unknown]
  - Fatigue [Unknown]
  - Dyspepsia [Unknown]
